FAERS Safety Report 13064805 (Version 1)
Quarter: 2016Q4

REPORT INFORMATION
  Report Type: Spontaneous
  Country: US (occurrence: US)
  Receive Date: 20161223
  Receipt Date: 20161223
  Transmission Date: 20170207
  Serious: Yes (Other)
  Sender: FDA-Public Use
  Company Number: None

PATIENT
  Age: 57 Year
  Sex: Female

DRUGS (1)
  1. YUVAFEM [Suspect]
     Active Substance: ESTRADIOL HEMIHYDRATE
     Indication: URETHRITIS
     Route: 067
     Dates: start: 20161130, end: 20161220

REACTIONS (3)
  - Product substitution issue [None]
  - Vulvovaginal pain [None]
  - Vulvovaginal burning sensation [None]

NARRATIVE: CASE EVENT DATE: 20161130
